FAERS Safety Report 5048866-9 (Version None)
Quarter: 2006Q3

REPORT INFORMATION
  Report Type: 
  Country: None (occurrence: None)
  Receive Date: 20060712
  Receipt Date: 20050602
  Transmission Date: 20061208
  Serious: Yes (Disabling)
  Sender: FDA-Public Use
  Company Number: US-GLAXOSMITHKLINE-A0561132A

PATIENT
  Age: 48 Year
  Sex: Female

DRUGS (2)
  1. IMITREX [Suspect]
     Indication: MIGRAINE
     Dosage: 100MG AS REQUIRED
     Route: 048
     Dates: start: 20050602
  2. NO CONCURRENT MEDICATION [Concomitant]

REACTIONS (4)
  - ASTHENIA [None]
  - CHEST DISCOMFORT [None]
  - FATIGUE [None]
  - PALPITATIONS [None]
